FAERS Safety Report 4898507-6 (Version None)
Quarter: 2006Q1

REPORT INFORMATION
  Report Type: 
  Country: None (occurrence: None)
  Receive Date: 20060130
  Receipt Date: 20060116
  Transmission Date: 20060701
  Serious: Yes (Hospitalization)
  Sender: FDA-Public Use
  Company Number: A-CH2006-11444

PATIENT
  Age: 73 Year
  Sex: Female
  Weight: 100 kg

DRUGS (6)
  1. TRACLEER [Suspect]
     Indication: PULMONARY HYPERTENSION
     Dosage: 62.5 MG BID ORAL
     Route: 048
     Dates: start: 20051206, end: 20051213
  2. METOLAZONE [Concomitant]
  3. LEVOTHYROXINE SODIUM [Concomitant]
  4. TOREM (TORASEMIDE) [Concomitant]
  5. ASPIRIN [Concomitant]
  6. INHIABACE ^ANDREU^ (CILAZAPRIL) [Concomitant]

REACTIONS (3)
  - HAEMOLYTIC ANAEMIA [None]
  - OEDEMA [None]
  - WEIGHT INCREASED [None]
